FAERS Safety Report 4494234-8 (Version None)
Quarter: 2004Q4

REPORT INFORMATION
  Report Type: 
  Country: None (occurrence: None)
  Receive Date: 20041105
  Receipt Date: 20020718
  Transmission Date: 20050328
  Serious: Yes (Other)
  Sender: FDA-Public Use
  Company Number: US-AMGEN-US016138

PATIENT
  Sex: Male
  Weight: 83.5 kg

DRUGS (5)
  1. EPOGEN [Suspect]
     Indication: ANAEMIA OF MALIGNANT DISEASE
     Route: 058
     Dates: start: 19991001, end: 20020528
  2. LEUKERAN [Concomitant]
     Dates: start: 20001205
  3. LIPITOR [Concomitant]
     Dates: start: 20000101
  4. PREDNISONE [Concomitant]
  5. IMMUNE GLOBULIN (HUMAN) [Concomitant]
     Dates: start: 20020101

REACTIONS (5)
  - COOMBS INDIRECT TEST POSITIVE [None]
  - DISEASE RECURRENCE [None]
  - INFECTION [None]
  - THERAPEUTIC RESPONSE DECREASED [None]
  - THROMBOCYTOPENIA [None]
